FAERS Safety Report 6247132-3 (Version None)
Quarter: 2009Q2

REPORT INFORMATION
  Report Type: 
  Country: None (occurrence: None)
  Receive Date: 20090624
  Receipt Date: 20090624
  Transmission Date: 20091009
  Serious: Yes (Hospitalization)
  Sender: FDA-Public Use
  Company Number: None

PATIENT
  Age: 78 Year
  Sex: Male
  Weight: 93 kg

DRUGS (1)
  1. LITHIUM CARBONATE [Suspect]
     Indication: NEUROENDOCRINE CARCINOMA
     Dosage: 300MG TID BY MOUTH DAILY PO
     Route: 048
     Dates: start: 20090518, end: 20090525

REACTIONS (9)
  - ABDOMINAL PAIN [None]
  - ANAEMIA [None]
  - BLOOD CREATINE ABNORMAL [None]
  - CHOLECYSTITIS ACUTE [None]
  - GASTROINTESTINAL NECROSIS [None]
  - HYPERGLYCAEMIA [None]
  - HYPONATRAEMIA [None]
  - MESENTERIC OCCLUSION [None]
  - NECROSIS ISCHAEMIC [None]
